FAERS Safety Report 4694952-2 (Version None)
Quarter: 2005Q2

REPORT INFORMATION
  Report Type: 
  Country: None (occurrence: None)
  Receive Date: 20050617
  Receipt Date: 20050606
  Transmission Date: 20051028
  Serious: Yes (Other)
  Sender: FDA-Public Use
  Company Number: 215060

PATIENT
  Age: 55 Year
  Sex: Male
  Weight: 66 kg

DRUGS (8)
  1. RITUXAN [Suspect]
     Indication: NON-HODGKIN'S LYMPHOMA
     Dosage: 630 MG IV DRIP
     Route: 041
     Dates: start: 20011006, end: 20011006
  2. RITUXAN [Suspect]
     Indication: NON-HODGKIN'S LYMPHOMA
     Dosage: 630 MG IV DRIP
     Route: 041
     Dates: start: 20011023, end: 20011126
  3. CYCLOPHOSPHAMIDE [Suspect]
     Indication: NON-HODGKIN'S LYMPHOMA
     Dosage: 2000 MG IV DRIP
     Route: 041
     Dates: start: 20011008, end: 20011008
  4. VEPESID [Suspect]
     Indication: NON-HODGKIN'S LYMPHOMA
     Dosage: 168 MG IV DRIP
     Route: 041
     Dates: start: 20011008, end: 20011010
  5. CYTARABINE [Suspect]
     Indication: NON-HODGKIN'S LYMPHOMA
     Dosage: 3360 MG IV DRIP
     Route: 041
     Dates: start: 20011009, end: 20011010
  6. DECADRON [Suspect]
     Indication: NON-HODGKIN'S LYMPHOMA
     Dosage: 40 MG IV DRIP
     Route: 041
     Dates: start: 20011008, end: 20011011
  7. LOXONIN (LOXOPROFEN SODIUM) [Concomitant]
  8. DEXCHLORPHENIRAMINE MALEATE [Concomitant]

REACTIONS (5)
  - HAEMOGLOBIN DECREASED [None]
  - LYMPHOCYTE PERCENTAGE DECREASED [None]
  - NEUTROPHIL COUNT DECREASED [None]
  - NEUTROPHIL PERCENTAGE INCREASED [None]
  - PLATELET COUNT DECREASED [None]
